FAERS Safety Report 5802129-X (Version None)
Quarter: 2008Q3

REPORT INFORMATION
  Report Type: 
  Country: None (occurrence: None)
  Receive Date: 20080707
  Receipt Date: 20080625
  Transmission Date: 20090109
  Serious: Yes (Death, Other)
  Sender: FDA-Public Use
  Company Number: BR-PFIZER INC-2007100914

PATIENT
  Sex: Male
  Weight: 63 kg

DRUGS (5)
  1. SUTENT [Suspect]
     Indication: RENAL CANCER METASTATIC
     Route: 048
     Dates: start: 20071023, end: 20071118
  2. EUTHYROX [Concomitant]
     Route: 048
  3. LASIX [Concomitant]
     Route: 048
  4. CAPTOPRIL [Concomitant]
     Route: 048
  5. RIVOTRIL [Concomitant]
     Route: 048

REACTIONS (7)
  - ASTHENIA [None]
  - CEREBRAL HAEMORRHAGE [None]
  - CONVULSION [None]
  - DISEASE PROGRESSION [None]
  - FATIGUE [None]
  - NAUSEA [None]
  - RENAL CANCER [None]
